FAERS Safety Report 4343861-7 (Version None)
Quarter: 2004Q2

REPORT INFORMATION
  Report Type: 
  Country: None (occurrence: None)
  Receive Date: 20040419
  Receipt Date: 20040407
  Transmission Date: 20050107
  Serious: Yes (Life-Threatening, Hospitalization)
  Sender: FDA-Public Use
  Company Number: TR-JNJFOC-20040401514

PATIENT
  Age: 29 Year
  Sex: Male
  Weight: 49 kg

DRUGS (4)
  1. REMICADE [Suspect]
     Indication: ANKYLOSING SPONDYLITIS
     Dosage: 300 MG, INTRAVENOUS
     Route: 042
     Dates: start: 20031201, end: 20040127
  2. METHOTREXATE [Concomitant]
  3. PREDNISOLONE [Concomitant]
  4. COLCHICINE (COLCHICINE) [Concomitant]

REACTIONS (4)
  - DIARRHOEA [None]
  - MONOCYTOSIS [None]
  - PANCYTOPENIA [None]
  - TUBERCULOSIS [None]
